FAERS Safety Report 10262642 (Version 2)
Quarter: 2014Q2

REPORT INFORMATION
  Report Type: Report from Study
  Country: US (occurrence: US)
  Receive Date: 20140626
  Receipt Date: 20140626
  Transmission Date: 20141212
  Serious: Yes (Death, Other)
  Sender: FDA-Public Use
  Company Number: US-MYLANLABS-2013S1009968

PATIENT
  Age: 57 Year
  Sex: Male

DRUGS (2)
  1. CLOZAPINE TABLETS [Suspect]
     Indication: PSYCHOTIC DISORDER
     Dosage: 200MG IN AM AND 400 MG AT BEDTIME
     Route: 048
     Dates: start: 201208, end: 2013
  2. CLOZAPINE TABLETS [Suspect]
     Indication: BIPOLAR DISORDER
     Dosage: 200MG IN AM AND 400 MG AT BEDTIME
     Route: 048
     Dates: start: 201208, end: 2013

REACTIONS (1)
  - Choking [Fatal]
